FAERS Safety Report 18198255 (Version 1)
Quarter: 2020Q3

REPORT INFORMATION
  Report Type: Spontaneous
  Country: US (occurrence: US)
  Receive Date: 20200825
  Receipt Date: 20200825
  Transmission Date: 20201103
  Serious: No
  Sender: FDA-Public Use
  Company Number: None

PATIENT
  Age: 63 Year
  Sex: Female

DRUGS (1)
  1. FORTEO [Suspect]
     Active Substance: TERIPARATIDE
     Dosage: ?          OTHER STRENGTH:600;?
     Route: 058
     Dates: start: 20180825

REACTIONS (5)
  - Eyelid ptosis [None]
  - Urinary tract infection [None]
  - Facial spasm [None]
  - Infection [None]
  - Therapeutic product effect decreased [None]

NARRATIVE: CASE EVENT DATE: 20190825
